FAERS Safety Report 17747414 (Version 4)
Quarter: 2022Q2

REPORT INFORMATION
  Report Type: Spontaneous
  Country: US (occurrence: US)
  Receive Date: 20200505
  Receipt Date: 20220511
  Transmission Date: 20220721
  Serious: No
  Sender: FDA-Public Use
  Company Number: US-PFIZER INC-2020178914

PATIENT
  Age: 73 Year
  Sex: Female
  Weight: 64 kg

DRUGS (21)
  1. CELECOXIB [Suspect]
     Active Substance: CELECOXIB
     Indication: Osteoarthritis
     Dosage: 200 MG, 1X/DAY
     Route: 048
  2. DILANTIN [Suspect]
     Active Substance: PHENYTOIN
     Dosage: UNK
  3. ERYTHROMYCIN [Suspect]
     Active Substance: ERYTHROMYCIN
     Dosage: UNK
  4. METHIMAZOLE [Suspect]
     Active Substance: METHIMAZOLE
     Dosage: UNK
  5. BETADINE [Suspect]
     Active Substance: POVIDONE-IODINE
     Dosage: UNK
  6. CARBAMAZEPINE [Suspect]
     Active Substance: CARBAMAZEPINE
     Dosage: UNK
  7. CODEINE [Suspect]
     Active Substance: CODEINE
     Dosage: UNK
  8. FELBATOL [Suspect]
     Active Substance: FELBAMATE
     Dosage: UNK
  9. FLUTICASONE [Suspect]
     Active Substance: FLUTICASONE
     Dosage: UNK
  10. IODINE [Suspect]
     Active Substance: IODINE
     Dosage: UNK
  11. LEVOTHYROXINE SODIUM [Suspect]
     Active Substance: LEVOTHYROXINE SODIUM
     Dosage: UNK
  12. LORTAB [Suspect]
     Active Substance: ACETAMINOPHEN\HYDROCODONE BITARTRATE
     Dosage: UNK
  13. MOBIC [Suspect]
     Active Substance: MELOXICAM
     Dosage: UNK
  14. MYSOLINE [Suspect]
     Active Substance: PRIMIDONE
     Dosage: UNK
  15. OXYCODONE [Suspect]
     Active Substance: OXYCODONE
     Dosage: UNK
  16. PERCOCET [Suspect]
     Active Substance: ACETAMINOPHEN\OXYCODONE HYDROCHLORIDE
     Dosage: UNK
  17. PHENOBARBITAL [Suspect]
     Active Substance: PHENOBARBITAL
     Dosage: UNK
  18. RESTASIS [Suspect]
     Active Substance: CYCLOSPORINE
     Dosage: UNK
  19. TEGRETOL [Suspect]
     Active Substance: CARBAMAZEPINE
     Dosage: UNK
  20. TEQUIN [Suspect]
     Active Substance: GATIFLOXACIN
     Dosage: UNK
  21. ULTRACET [Suspect]
     Active Substance: ACETAMINOPHEN\TRAMADOL HYDROCHLORIDE
     Dosage: UNK

REACTIONS (1)
  - Drug hypersensitivity [Unknown]
